FAERS Safety Report 14319346 (Version 1)
Quarter: 2017Q4

REPORT INFORMATION
  Report Type: Spontaneous
  Country: US (occurrence: US)
  Receive Date: 20171221
  Receipt Date: 20171221
  Transmission Date: 20180321
  Serious: No
  Sender: FDA-Public Use
  Company Number: None

PATIENT
  Age: 49 Year
  Sex: Female

DRUGS (1)
  1. SIMPONI [Suspect]
     Active Substance: GOLIMUMAB

REACTIONS (5)
  - Pain in extremity [None]
  - Dyspnoea [None]
  - Swelling [None]
  - Rash [None]
  - Hyperhidrosis [None]

NARRATIVE: CASE EVENT DATE: 20171221
